FAERS Safety Report 7746554-9 (Version None)
Quarter: 2011Q3

REPORT INFORMATION
  Report Type: 
  Country: None (occurrence: None)
  Receive Date: 20110908
  Receipt Date: 20110823
  Transmission Date: 20111222
  Serious: Yes (Hospitalization)
  Sender: FDA-Public Use
  Company Number: PRED20110078

PATIENT
  Age: 72 Year
  Sex: Male

DRUGS (2)
  1. PREDNISONE [Suspect]
     Indication: RHEUMATOID ARTHRITIS
     Dosage: 15-40 MG, 1 IN 1 D, ORAL
     Route: 048
  2. TACROLIMUS [Suspect]
     Indication: RHEUMATOID ARTHRITIS

REACTIONS (2)
  - KAPOSI'S SARCOMA [None]
  - WEIGHT DECREASED [None]
